FAERS Safety Report 19899094 (Version 1)
Quarter: 2021Q3

REPORT INFORMATION
  Report Type: Report from Study
  Country: US (occurrence: US)
  Receive Date: 20210929
  Receipt Date: 20210929
  Transmission Date: 20211014
  Serious: No
  Sender: FDA-Public Use
  Company Number: US-KYOWAKIRIN-2021BKK016105

PATIENT

DRUGS (6)
  1. CRYSVITA [Suspect]
     Active Substance: BUROSUMAB-TWZA
     Dosage: STRENGTH 20 AND 30 MG/ML COMBINED TO ACHIEVE DOSE OF 50 MG, EVERY 4 WEEKS
     Route: 058
  2. CRYSVITA [Suspect]
     Active Substance: BUROSUMAB-TWZA
     Indication: HEREDITARY HYPOPHOSPHATAEMIC RICKETS
     Dosage: STRENGTH 20 AND 30 MG/ML COMBINED TO ACHIEVE DOSE OF 80 MG, EVERY 28 DAYS
     Route: 058
  3. CRYSVITA [Suspect]
     Active Substance: BUROSUMAB-TWZA
     Dosage: UNK
     Route: 065
     Dates: start: 20200630
  4. CRYSVITA [Suspect]
     Active Substance: BUROSUMAB-TWZA
     Indication: HEREDITARY HYPOPHOSPHATAEMIC RICKETS
     Dosage: STRENGTH 20 AND 30 MG/ML COMBINED TO ACHIEVE DOSE OF 80 MG, EVERY 28 DAYS
     Route: 058
  5. CRYSVITA [Suspect]
     Active Substance: BUROSUMAB-TWZA
     Dosage: STRENGTH 20 AND 30 MG/ML COMBINED TO ACHIEVE DOSE OF 50 MG, EVERY 4 WEEKS
     Route: 058
  6. CRYSVITA [Suspect]
     Active Substance: BUROSUMAB-TWZA
     Dosage: UNK
     Route: 065
     Dates: start: 20200630

REACTIONS (5)
  - Blood 25-hydroxycholecalciferol decreased [Unknown]
  - Blood calcium increased [Unknown]
  - Blood phosphorus decreased [Unknown]
  - Blood parathyroid hormone increased [Unknown]
  - Weight increased [Unknown]

NARRATIVE: CASE EVENT DATE: 20210916
